FAERS Safety Report 7965825-4 (Version None)
Quarter: 2011Q4

REPORT INFORMATION
  Report Type: 
  Country: None (occurrence: None)
  Receive Date: 20111208
  Receipt Date: 20111205
  Transmission Date: 20120403
  Serious: Yes (Other)
  Sender: FDA-Public Use
  Company Number: BR-PFIZER INC-2011205714

PATIENT
  Age: 51 Year
  Sex: Male
  Weight: 62 kg

DRUGS (5)
  1. ETANERCEPT [Concomitant]
     Indication: ANKYLOSING SPONDYLITIS
     Dosage: 50 MG, WEEKLY
  2. METHOTREXATE [Concomitant]
     Indication: ANKYLOSING SPONDYLITIS
     Dosage: 7.5 MG, WEEKLY
  3. DICLOFENAC SODIUM [Concomitant]
  4. EFFEXOR XR [Suspect]
     Indication: DEPRESSION
     Dosage: 150 MG, 1X/DAY
     Route: 048
     Dates: start: 20110706, end: 20110710
  5. FOLIC ACID [Concomitant]
     Indication: ANKYLOSING SPONDYLITIS
     Dosage: 5 MG, WEEKLY

REACTIONS (5)
  - RENAL COLIC [None]
  - MICTURITION URGENCY [None]
  - DYSURIA [None]
  - URINE OUTPUT DECREASED [None]
  - POLLAKIURIA [None]
